FAERS Safety Report 10403552 (Version 1)
Quarter: 2014Q3

REPORT INFORMATION
  Report Type: Spontaneous
  Country: US (occurrence: US)
  Receive Date: 20140822
  Receipt Date: 20140822
  Transmission Date: 20150326
  Serious: No
  Sender: FDA-Public Use
  Company Number: US-009507513-1408USA011378

PATIENT
  Age: 21 Year
  Sex: Female
  Weight: 145.58 kg

DRUGS (2)
  1. NEXPLANON [Suspect]
     Active Substance: ETONOGESTREL
     Indication: CONTRACEPTION
     Dosage: ONE ROD/EVERY 3 YEARS
     Route: 059
     Dates: start: 20140130
  2. NEXPLANON [Suspect]
     Active Substance: ETONOGESTREL
     Dosage: ONE ROD/EVERY 3 YEARS
     Route: 059
     Dates: start: 2010, end: 20140130

REACTIONS (5)
  - Product quality issue [Unknown]
  - Implant site swelling [Recovered/Resolved]
  - Device breakage [Not Recovered/Not Resolved]
  - Implant site erythema [Recovered/Resolved]
  - Amenorrhoea [Unknown]

NARRATIVE: CASE EVENT DATE: 2010
